FAERS Safety Report 20314537 (Version 27)
Quarter: 2022Q4

REPORT INFORMATION
  Report Type: Report from Study
  Country: NL (occurrence: None)
  Receive Date: 20220110
  Receipt Date: 20221227
  Transmission Date: 20230112
  Serious: Yes (Hospitalization)
  Sender: FDA-Public Use
  Company Number: NL-ROCHE-2995667

PATIENT
  Age: 57 Year
  Sex: Female
  Weight: 77.6 kg

DRUGS (78)
  1. ATEZOLIZUMAB [Suspect]
     Active Substance: ATEZOLIZUMAB
     Indication: Pancreatic carcinoma metastatic
     Dosage: ON 07/DEC/2021 FROM 04:48 PM TO 05:26 PM, SHE STARTED AND ENDED TO RECEIVED ATEZOLIZUMAB 840 MG PRIO
     Route: 041
     Dates: start: 20211123
  2. OMEPRAZOLE [Concomitant]
     Active Substance: OMEPRAZOLE
     Indication: Nausea
     Route: 048
     Dates: start: 20211123
  3. OMEPRAZOLE [Concomitant]
     Active Substance: OMEPRAZOLE
     Dosage: GIVEN FOR PROPHYLAXIS YES
     Route: 048
  4. METOCLOPRAMIDE [Concomitant]
     Active Substance: METOCLOPRAMIDE
     Indication: Nausea
     Route: 042
     Dates: start: 20211123
  5. METOCLOPRAMIDE [Concomitant]
     Active Substance: METOCLOPRAMIDE
     Indication: Infusion related reaction
     Route: 048
     Dates: start: 20211208
  6. METOCLOPRAMIDE [Concomitant]
     Active Substance: METOCLOPRAMIDE
     Indication: Premedication
     Dosage: ONGOING YES?GIVEN FOR PROPHYLAXIS YES
     Route: 048
     Dates: start: 20211207, end: 20211207
  7. METOCLOPRAMIDE [Concomitant]
     Active Substance: METOCLOPRAMIDE
     Route: 042
     Dates: start: 20220111, end: 20220111
  8. METOCLOPRAMIDE [Concomitant]
     Active Substance: METOCLOPRAMIDE
     Route: 042
     Dates: start: 20220201, end: 20220201
  9. METOCLOPRAMIDE [Concomitant]
     Active Substance: METOCLOPRAMIDE
     Route: 042
     Dates: start: 20220419, end: 20220419
  10. METOCLOPRAMIDE [Concomitant]
     Active Substance: METOCLOPRAMIDE
     Route: 042
     Dates: start: 20220503, end: 20220503
  11. METOCLOPRAMIDE [Concomitant]
     Active Substance: METOCLOPRAMIDE
     Route: 058
     Dates: start: 20220517, end: 20220517
  12. METOCLOPRAMIDE [Concomitant]
     Active Substance: METOCLOPRAMIDE
     Route: 042
     Dates: start: 20220614, end: 20220614
  13. METOCLOPRAMIDE [Concomitant]
     Active Substance: METOCLOPRAMIDE
     Route: 042
     Dates: start: 20220628, end: 20220628
  14. METOCLOPRAMIDE [Concomitant]
     Active Substance: METOCLOPRAMIDE
     Route: 042
     Dates: start: 20220712, end: 20220712
  15. METOCLOPRAMIDE [Concomitant]
     Active Substance: METOCLOPRAMIDE
     Route: 042
     Dates: start: 20220809, end: 20220809
  16. METOCLOPRAMIDE [Concomitant]
     Active Substance: METOCLOPRAMIDE
     Route: 042
     Dates: start: 20220823, end: 20220823
  17. METOCLOPRAMIDE [Concomitant]
     Active Substance: METOCLOPRAMIDE
     Route: 042
     Dates: start: 20221027, end: 20221027
  18. CLEMASTINE [Concomitant]
     Active Substance: CLEMASTINE
     Indication: Premedication
     Route: 042
     Dates: start: 20211207, end: 20211207
  19. CLEMASTINE [Concomitant]
     Active Substance: CLEMASTINE
     Route: 042
     Dates: start: 20220419, end: 20220419
  20. CLEMASTINE [Concomitant]
     Active Substance: CLEMASTINE
     Route: 042
     Dates: start: 20220517, end: 20220517
  21. CLEMASTINE [Concomitant]
     Active Substance: CLEMASTINE
     Route: 042
     Dates: start: 20220111, end: 20220111
  22. CLEMASTINE [Concomitant]
     Active Substance: CLEMASTINE
     Route: 042
     Dates: start: 20220405, end: 20220405
  23. CLEMASTINE [Concomitant]
     Active Substance: CLEMASTINE
     Route: 042
     Dates: start: 20220614, end: 20220614
  24. CLEMASTINE [Concomitant]
     Active Substance: CLEMASTINE
     Route: 042
     Dates: start: 20220712, end: 20220712
  25. CLEMASTINE [Concomitant]
     Active Substance: CLEMASTINE
     Route: 042
     Dates: start: 20220726, end: 20220726
  26. CLEMASTINE [Concomitant]
     Active Substance: CLEMASTINE
     Route: 042
     Dates: start: 20220809, end: 20220809
  27. CLEMASTINE [Concomitant]
     Active Substance: CLEMASTINE
     Route: 042
     Dates: start: 20220823, end: 20220823
  28. OXYCODONE [Concomitant]
     Active Substance: OXYCODONE
     Indication: Back pain
     Route: 048
     Dates: start: 20211014
  29. OXYCODONE [Concomitant]
     Active Substance: OXYCODONE
     Route: 048
     Dates: start: 20211014
  30. OXALIPLATIN [Concomitant]
     Active Substance: OXALIPLATIN
     Dosage: UNKNOWN
     Dates: start: 20190726
  31. IRINOTECAN [Concomitant]
     Active Substance: IRINOTECAN
     Dosage: UNKNOWN
     Dates: start: 20190726
  32. LEUCOVORIN [Concomitant]
     Active Substance: LEUCOVORIN
     Dosage: UNKNOWN
     Dates: start: 20190726
  33. FLUOROURACIL [Concomitant]
     Active Substance: FLUOROURACIL
     Dosage: UNKNOWN
     Dates: start: 20190726
  34. ACETAMINOPHEN [Concomitant]
     Active Substance: ACETAMINOPHEN
     Indication: Back pain
     Dosage: ONGOING YES
     Route: 048
  35. ACETAMINOPHEN [Concomitant]
     Active Substance: ACETAMINOPHEN
     Indication: Malaise
     Route: 048
     Dates: start: 20220906, end: 20220912
  36. MOVICOLON [Concomitant]
     Active Substance: POLYETHYLENE GLYCOL 3350\POTASSIUM CHLORIDE\SODIUM BICARBONATE\SODIUM CHLORIDE
     Indication: Constipation
     Dosage: 1 SACHET?ONGOING YES
     Route: 048
     Dates: start: 20210727
  37. HYDROCORTISONE [Concomitant]
     Active Substance: HYDROCORTISONE
     Indication: Cytokine release syndrome
     Route: 042
     Dates: start: 20220208, end: 20220208
  38. HYDROCORTISONE [Concomitant]
     Active Substance: HYDROCORTISONE
     Route: 042
     Dates: start: 20220111, end: 20220111
  39. HYDROCORTISONE [Concomitant]
     Active Substance: HYDROCORTISONE
     Route: 042
     Dates: start: 20220201, end: 20220201
  40. HYDROCORTISONE [Concomitant]
     Active Substance: HYDROCORTISONE
     Route: 042
     Dates: start: 20220322, end: 20220322
  41. HYDROCORTISONE [Concomitant]
     Active Substance: HYDROCORTISONE
     Route: 042
     Dates: start: 20220405, end: 20220405
  42. HYDROCORTISONE [Concomitant]
     Active Substance: HYDROCORTISONE
     Route: 042
     Dates: start: 20220419, end: 20220419
  43. FUROSEMIDE [Concomitant]
     Active Substance: FUROSEMIDE
     Indication: Cytokine release syndrome
     Route: 048
     Dates: start: 20220209, end: 20220211
  44. FUROSEMIDE [Concomitant]
     Active Substance: FUROSEMIDE
     Route: 048
     Dates: start: 20211210, end: 20220322
  45. CEFUROXIME [Concomitant]
     Active Substance: CEFUROXIME
     Indication: Cytokine release syndrome
     Route: 042
     Dates: start: 20220208, end: 20220211
  46. TOBRAMYCIN [Concomitant]
     Active Substance: TOBRAMYCIN
     Indication: Cytokine release syndrome
     Route: 042
     Dates: start: 20220208, end: 20220209
  47. ACETAMINOPHEN [Concomitant]
     Active Substance: ACETAMINOPHEN
     Indication: Cholangitis infective
     Route: 048
     Dates: start: 20220201, end: 20220201
  48. ACETAMINOPHEN [Concomitant]
     Active Substance: ACETAMINOPHEN
     Route: 042
     Dates: start: 20221027, end: 20221027
  49. CLEMASTINE [Concomitant]
     Active Substance: CLEMASTINE
     Indication: Premedication
     Route: 042
     Dates: start: 20220111, end: 20220111
  50. CLEMASTINE [Concomitant]
     Active Substance: CLEMASTINE
     Route: 042
     Dates: start: 20220201, end: 20220201
  51. CLEMASTINE [Concomitant]
     Active Substance: CLEMASTINE
     Route: 042
     Dates: start: 20211207, end: 20211207
  52. CLEMASTINE [Concomitant]
     Active Substance: CLEMASTINE
     Route: 042
     Dates: start: 20220322, end: 20220322
  53. CLEMASTINE [Concomitant]
     Active Substance: CLEMASTINE
     Route: 042
     Dates: start: 20220405, end: 20220405
  54. CLEMASTINE [Concomitant]
     Active Substance: CLEMASTINE
     Route: 042
     Dates: start: 20220503, end: 20220503
  55. CLEMASTINE [Concomitant]
     Active Substance: CLEMASTINE
     Route: 042
     Dates: start: 20220531, end: 20220531
  56. CLEMASTINE [Concomitant]
     Active Substance: CLEMASTINE
     Route: 042
     Dates: start: 20220628, end: 20220628
  57. CLEMASTINE [Concomitant]
     Active Substance: CLEMASTINE
     Route: 042
     Dates: start: 20220823, end: 20220823
  58. METOCLOPRAMIDE [Concomitant]
     Active Substance: METOCLOPRAMIDE
     Route: 042
     Dates: start: 20220111, end: 20220111
  59. METOCLOPRAMIDE [Concomitant]
     Active Substance: METOCLOPRAMIDE
     Route: 042
     Dates: start: 20220201, end: 20220201
  60. METOCLOPRAMIDE [Concomitant]
     Active Substance: METOCLOPRAMIDE
     Route: 042
     Dates: start: 20220201, end: 20220201
  61. METOCLOPRAMIDE [Concomitant]
     Active Substance: METOCLOPRAMIDE
     Route: 042
     Dates: start: 20220405, end: 20220405
  62. METOCLOPRAMIDE [Concomitant]
     Active Substance: METOCLOPRAMIDE
     Route: 042
     Dates: start: 20220531, end: 20220531
  63. METOCLOPRAMIDE [Concomitant]
     Active Substance: METOCLOPRAMIDE
     Route: 042
     Dates: start: 20220726, end: 20220726
  64. METOCLOPRAMIDE [Concomitant]
     Active Substance: METOCLOPRAMIDE
     Route: 042
     Dates: start: 20220712, end: 20220712
  65. ACETAMINOPHEN [Concomitant]
     Active Substance: ACETAMINOPHEN
     Indication: Premedication
     Route: 048
     Dates: start: 20220201, end: 20220201
  66. CEFTRIAXONE [Concomitant]
     Active Substance: CEFTRIAXONE
     Indication: Cholangitis
     Route: 042
     Dates: start: 20220302, end: 20220305
  67. SPIRONOLACTONE [Concomitant]
     Active Substance: SPIRONOLACTONE
     Route: 048
     Dates: start: 20220419
  68. SODIUM PHOSPHATE [Concomitant]
     Active Substance: SODIUM PHOSPHATE
     Indication: Malaise
     Route: 054
     Dates: start: 20220906, end: 20220906
  69. NOREPINEPHRINE [Concomitant]
     Active Substance: NOREPINEPHRINE
     Indication: Cholangitis infective
     Dosage: 0.227 OTHER
     Route: 042
     Dates: start: 20221027, end: 20221027
  70. TOBRAMYCIN SULFATE [Concomitant]
     Active Substance: TOBRAMYCIN SULFATE
     Indication: Cholangitis infective
     Route: 042
     Dates: start: 20221027, end: 20221027
  71. PIRITRAMIDE [Concomitant]
     Active Substance: PIRITRAMIDE
     Indication: Cholangitis infective
     Route: 042
     Dates: start: 20221027
  72. ACETAMINOPHEN [Concomitant]
     Active Substance: ACETAMINOPHEN
     Indication: Cholangitis infective
  73. CEFTRIAXONE [Concomitant]
     Active Substance: CEFTRIAXONE
     Indication: Cholangitis infective
     Route: 042
     Dates: start: 20221027, end: 20221027
  74. ANTAGEL [Concomitant]
     Indication: Malaise
     Route: 048
     Dates: start: 20220911, end: 20220911
  75. NUTRISON SOYA [Concomitant]
     Indication: Malaise
     Route: 042
     Dates: start: 20220910, end: 20220911
  76. LORAZEPAM [Concomitant]
     Active Substance: LORAZEPAM
     Indication: Malaise
     Route: 048
     Dates: start: 20220906, end: 20220911
  77. SPIRONOLACTONE [Concomitant]
     Active Substance: SPIRONOLACTONE
     Indication: Pleural effusion
     Route: 048
     Dates: start: 20220121, end: 20220418
  78. SPIRONOLACTONE [Concomitant]
     Active Substance: SPIRONOLACTONE
     Route: 048
     Dates: start: 20220419

REACTIONS (1)
  - Pleural effusion [Not Recovered/Not Resolved]

NARRATIVE: CASE EVENT DATE: 20211230
